FAERS Safety Report 11614906 (Version 2)
Quarter: 2015Q4

REPORT INFORMATION
  Report Type: Spontaneous
  Country: US (occurrence: US)
  Receive Date: 20151009
  Receipt Date: 20151120
  Transmission Date: 20160304
  Serious: Yes (Hospitalization)
  Sender: FDA-Public Use
  Company Number: US-TEVA-598180USA

PATIENT
  Age: 43 Year
  Sex: Female
  Weight: 97.61 kg

DRUGS (2)
  1. EPOPROSTENOL. [Suspect]
     Active Substance: EPOPROSTENOL
     Indication: PULMONARY ARTERIAL HYPERTENSION
     Dosage: 7 NG/KG/MIN
     Route: 042
     Dates: start: 20150827
  2. EPOPROSTENOL. [Suspect]
     Active Substance: EPOPROSTENOL
     Dosage: 20 NG/KG/MIN
     Route: 042
     Dates: start: 20150827

REACTIONS (11)
  - Activities of daily living impaired [Unknown]
  - Blister [Unknown]
  - Catheter site inflammation [Unknown]
  - Pain in jaw [Unknown]
  - Nausea [Unknown]
  - Asthenia [Unknown]
  - Eye pain [Unknown]
  - Medical device complication [Unknown]
  - Constipation [Unknown]
  - Rash [Unknown]
  - Hypotension [Unknown]

NARRATIVE: CASE EVENT DATE: 20150929
